FAERS Safety Report 5364558-0 (Version None)
Quarter: 2007Q2

REPORT INFORMATION
  Report Type: 
  Country: None (occurrence: None)
  Receive Date: 20070530
  Receipt Date: 20070118
  Transmission Date: 20071010
  Serious: No
  Sender: FDA-Public Use
  Company Number: 2007PV028656

PATIENT
  Age: 73 Year
  Sex: Female
  Weight: 86.637 kg

DRUGS (2)
  1. BYETTA [Suspect]
     Indication: DIABETES MELLITUS NON-INSULIN-DEPENDENT
     Dosage: 5 MCG;QD;SC; 5 MCG;BID;SC
     Route: 058
     Dates: start: 20061001, end: 20070103
  2. BYETTA [Suspect]
     Indication: DIABETES MELLITUS NON-INSULIN-DEPENDENT
     Dosage: 5 MCG;QD;SC; 5 MCG;BID;SC
     Route: 058
     Dates: start: 20070104

REACTIONS (5)
  - BLOOD GLUCOSE INCREASED [None]
  - DIARRHOEA [None]
  - MALAISE [None]
  - NAUSEA [None]
  - VOMITING [None]
